FAERS Safety Report 13831961 (Version 1)
Quarter: 2017Q3

REPORT INFORMATION
  Report Type: Spontaneous
  Country: US (occurrence: US)
  Receive Date: 20170803
  Receipt Date: 20170803
  Transmission Date: 20171127
  Serious: Yes (Death, Hospitalization)
  Sender: FDA-Public Use
  Company Number: None

PATIENT
  Age: 70 Year
  Sex: Female
  Weight: 71.3 kg

DRUGS (1)
  1. ARIMIDEX [Suspect]
     Active Substance: ANASTROZOLE
     Dates: end: 20170411

REACTIONS (8)
  - Dementia [None]
  - Hallucination [None]
  - Agitation [None]
  - Mental status changes [None]
  - Ischaemic stroke [None]
  - Creutzfeldt-Jakob disease [None]
  - Encephalopathy [None]
  - Aphasia [None]

NARRATIVE: CASE EVENT DATE: 20170315
